FAERS Safety Report 6581700-4 (Version None)
Quarter: 2010Q1

REPORT INFORMATION
  Report Type: 
  Country: None (occurrence: None)
  Receive Date: 20100211
  Receipt Date: 20100211
  Transmission Date: 20100710
  Serious: Yes (Disabling)
  Sender: FDA-Public Use
  Company Number: None

PATIENT
  Age: 54 Year
  Sex: Male
  Weight: 102.5129 kg

DRUGS (2)
  1. DURAGESIC-100 [Suspect]
     Indication: OSTEOARTHRITIS
     Dosage: 100 MG
     Dates: start: 20091201
  2. DURAGESIC-100 [Suspect]
     Indication: PAIN
     Dosage: 100 MG
     Dates: start: 20091201

REACTIONS (4)
  - DRUG WITHDRAWAL SYNDROME [None]
  - PAIN [None]
  - PRODUCT QUALITY ISSUE [None]
  - THERAPEUTIC RESPONSE UNEXPECTED [None]
